FAERS Safety Report 7799498-0 (Version None)
Quarter: 2011Q4

REPORT INFORMATION
  Report Type: 
  Country: None (occurrence: None)
  Receive Date: 20111006
  Receipt Date: 20110926
  Transmission Date: 20120403
  Serious: Yes (Other)
  Sender: FDA-Public Use
  Company Number: PHHY2009JP28247

PATIENT
  Sex: Male

DRUGS (16)
  1. MEXITIL [Concomitant]
     Dosage: 300 MG, DAILY
     Dates: start: 20090501
  2. MUCOSTA [Concomitant]
     Indication: GASTRITIS
     Dosage: 300 MG, DAILY
     Route: 048
     Dates: start: 20090501
  3. PRAVASTATIN SODIUM [Concomitant]
     Indication: HYPERCHOLESTEROLAEMIA
     Dosage: 10 MG, DAILY
     Route: 048
     Dates: start: 20090501
  4. ASPARA-CA [Concomitant]
     Indication: PROPHYLAXIS
     Dosage: 600 MG, DAILY
     Route: 048
     Dates: start: 20090501
  5. GLIMICRON [Concomitant]
     Dosage: 40 MG, DAILY
     Route: 048
     Dates: start: 20090501
  6. DEPAS [Concomitant]
     Indication: INSOMNIA
     Dosage: 1 MG, DAILY
     Route: 048
     Dates: start: 20090501
  7. MUCOSOLVAN [Concomitant]
     Dosage: 45 MG, DAILY
     Route: 048
     Dates: start: 20090501
  8. ASPIRIN [Concomitant]
     Dosage: 100 MG, DAILY
     Dates: start: 20090501
  9. ISOSORBIDE MONONITRATE [Concomitant]
     Dosage: 40 MG, DAILY
     Route: 048
     Dates: start: 20090501
  10. TASIGNA [Suspect]
     Indication: CHRONIC MYELOID LEUKAEMIA
     Dosage: 400 MG, DAILY
     Route: 048
     Dates: start: 20090603, end: 20090616
  11. ALLOPURINOL [Concomitant]
     Dosage: 100 MG, DAILY
     Route: 048
     Dates: start: 20090501
  12. BAYCARON [Concomitant]
     Dosage: 12.5 MG, DAILY
     Route: 048
     Dates: start: 20090501
  13. LANIRAPID [Concomitant]
     Dosage: 0.1 MG, DAILY
     Route: 048
  14. PLAVIX [Concomitant]
     Dosage: 75 MG, DAILY
     Route: 048
     Dates: start: 20090501
  15. TASIGNA [Suspect]
     Dosage: 200 MG, DAILY
     Route: 048
     Dates: start: 20090617, end: 20090623
  16. LASIX [Concomitant]
     Dosage: 40 MG, DAILY
     Route: 048
     Dates: start: 20090501

REACTIONS (3)
  - ANAEMIA [None]
  - PYREXIA [None]
  - COUGH [None]
